FAERS Safety Report 15244691 (Version 1)
Quarter: 2018Q3

REPORT INFORMATION
  Report Type: Report from Study
  Country: GB (occurrence: GB)
  Receive Date: 20180806
  Receipt Date: 20180806
  Transmission Date: 20181010
  Serious: Yes (Hospitalization, Other)
  Sender: FDA-Public Use
  Company Number: GB-TEVA-2018-GB-935345

PATIENT
  Sex: Female
  Weight: 68.5 kg

DRUGS (15)
  1. ONDANSETRON [Concomitant]
     Active Substance: ONDANSETRON
     Dosage: PRE CHEMO
     Route: 065
     Dates: start: 20120907, end: 20121224
  2. VENTOLIN [Concomitant]
     Active Substance: ALBUTEROL SULFATE
     Dosage: 1 PUFF
     Route: 065
  3. HYOSCINE?N?BUTYLBROMIDE [Concomitant]
     Active Substance: BUTYLSCOPOLAMINE BROMIDE
     Route: 065
  4. PACLITAXEL. [Suspect]
     Active Substance: PACLITAXEL
     Route: 065
     Dates: start: 20140722, end: 20141110
  5. AVASTIN [Suspect]
     Active Substance: BEVACIZUMAB
     Dosage: LAST DOSE PRIOR TO SAE 20/FEB/2014
     Route: 042
     Dates: start: 20141114
  6. ONDANSETRON [Concomitant]
     Active Substance: ONDANSETRON
     Route: 065
     Dates: start: 201407, end: 201408
  7. PACLITAXEL. [Suspect]
     Active Substance: PACLITAXEL
     Indication: OVARIAN CANCER
     Route: 065
     Dates: start: 20120907
  8. CARBOPLATIN. [Suspect]
     Active Substance: CARBOPLATIN
     Indication: OVARIAN CANCER
     Route: 065
     Dates: start: 20120907
  9. RANITIDINE. [Concomitant]
     Active Substance: RANITIDINE
     Dosage: PRE CHEMO
     Route: 065
     Dates: start: 20120907, end: 20121224
  10. CARBOPLATIN. [Suspect]
     Active Substance: CARBOPLATIN
     Route: 065
     Dates: start: 20140722, end: 20141110
  11. AVASTIN [Suspect]
     Active Substance: BEVACIZUMAB
     Indication: OVARIAN CANCER
     Dosage: LAST DOSE PRIOR TO SAE 20/FEB/2014?21 DAY CYCLE
     Route: 042
     Dates: start: 20121114
  12. AVASTIN [Suspect]
     Active Substance: BEVACIZUMAB
     Dosage: LAST DOSE PRIOR TO EVENT 31/MAY/2013.
     Route: 042
     Dates: start: 20121114
  13. METOCLOPRAMIDE. [Concomitant]
     Active Substance: METOCLOPRAMIDE
     Route: 065
     Dates: start: 20120907, end: 20121224
  14. CHLORPHENAMINE [Concomitant]
     Active Substance: CHLORPHENIRAMINE MALEATE
     Dosage: PRE CHEMO
     Route: 065
     Dates: start: 20120907, end: 20121224
  15. DEXAMETHASONE. [Concomitant]
     Active Substance: DEXAMETHASONE
     Dosage: POST CHEMOTHERAPY
     Route: 065
     Dates: start: 20120907, end: 20121224

REACTIONS (5)
  - Neutrophil count decreased [Recovered/Resolved]
  - Hypertension [Recovered/Resolved]
  - Neutrophil count decreased [Recovered/Resolved]
  - Tumour pain [Recovered/Resolved]
  - Abdominal pain [Recovered/Resolved]

NARRATIVE: CASE EVENT DATE: 201211
